FAERS Safety Report 5156903-6 (Version None)
Quarter: 2006Q4

REPORT INFORMATION
  Report Type: 
  Country: None (occurrence: None)
  Receive Date: 20060918
  Receipt Date: 20060710
  Transmission Date: 20070319
  Serious: Yes (Other)
  Sender: FDA-Public Use
  Company Number: US-JNJFOC-20060702040

PATIENT
  Age: 27 Year
  Sex: Female

DRUGS (2)
  1. TOPAMAX [Suspect]
     Indication: COMPLEX PARTIAL SEIZURES
     Dosage: 50 MG 2 IN 1 DAY ORAL
     Route: 048
     Dates: start: 20041201, end: 20060501
  2. KEPPRA [Suspect]
     Indication: COMPLEX PARTIAL SEIZURES
     Dosage: ORAL
     Route: 048
     Dates: start: 20040101, end: 20041201

REACTIONS (2)
  - CONVULSION [None]
  - OBSESSIVE-COMPULSIVE DISORDER [None]
